FAERS Safety Report 9444752 (Version 1)
Quarter: 2013Q3

REPORT INFORMATION
  Report Type: Spontaneous
  Country: RU (occurrence: RU)
  Receive Date: 20130807
  Receipt Date: 20130807
  Transmission Date: 20140515
  Serious: Yes (Hospitalization)
  Sender: FDA-Public Use
  Company Number: RU-RANBAXY-2005US-00589

PATIENT
  Sex: Male

DRUGS (6)
  1. ENALAPRIL [Suspect]
     Indication: CARDIAC FAILURE
     Route: 065
  2. CAPTOPRIL [Suspect]
     Indication: CARDIAC FAILURE
     Route: 065
  3. CILAZAPRIL [Suspect]
     Indication: CARDIAC FAILURE
     Route: 065
  4. SIMVASTATIN [Concomitant]
     Indication: PROPHYLAXIS
     Route: 065
  5. SIMVASTATIN [Concomitant]
     Indication: RENAL IMPAIRMENT
  6. AMLODIPINE [Concomitant]
     Indication: SYSTOLIC HYPERTENSION
     Route: 065

REACTIONS (1)
  - Renal ischaemia [Recovering/Resolving]
